FAERS Safety Report 16236707 (Version 2)
Quarter: 2019Q2

REPORT INFORMATION
  Report Type: Spontaneous
  Country: JP (occurrence: JP)
  Receive Date: 20190425
  Receipt Date: 20190621
  Transmission Date: 20190711
  Serious: Yes (Hospitalization)
  Sender: FDA-Public Use
  Company Number: JP-TEVA-2019-JP-1042801

PATIENT
  Age: 78 Year
  Sex: Female

DRUGS (4)
  1. BOIOGITO [Concomitant]
  2. EDIROL [Concomitant]
     Active Substance: ELDECALCITOL
  3. RISEDRONATE SODIUM. [Suspect]
     Active Substance: RISEDRONATE SODIUM
     Indication: OSTEOPOROSIS
     Route: 048
     Dates: start: 20180503
  4. VITAMINS NOS [Concomitant]
     Active Substance: VITAMINS
     Dates: start: 20150320

REACTIONS (1)
  - Cholesteatoma [Recovered/Resolved]

NARRATIVE: CASE EVENT DATE: 20180902
